FAERS Safety Report 8961883 (Version 2)
Quarter: 2012Q4

REPORT INFORMATION
  Report Type: 
  Country: JP (occurrence: JP)
  Receive Date: 20121212
  Receipt Date: 20121218
  Transmission Date: 20130627
  Serious: Yes (Death, Other)
  Sender: FDA-Public Use
  Company Number: PHHY2012JP114382

PATIENT
  Age: 68 Year
  Sex: Female

DRUGS (3)
  1. METHOTREXATE [Suspect]
     Indication: RHEUMATOID ARTHRITIS
     Dosage: UNK
     Dates: start: 2001
  2. TUMOR NECROSIS FACTOR ALPHA (TNF-) INHIBITORS [Concomitant]
     Indication: RHEUMATOID ARTHRITIS
  3. PREDNISOLONE [Concomitant]
     Indication: RHEUMATOID ARTHRITIS

REACTIONS (8)
  - Sepsis [Fatal]
  - Acute myeloid leukaemia [Fatal]
  - Pancytopenia [Fatal]
  - Thrombocytopenia [Fatal]
  - Anaemia [Fatal]
  - Lymphoproliferative disorder [Unknown]
  - Pyrexia [Unknown]
  - Lymphadenopathy [Unknown]
